FAERS Safety Report 19499274 (Version 2)
Quarter: 2021Q3

REPORT INFORMATION
  Report Type: Spontaneous
  Country: JP (occurrence: JP)
  Receive Date: 20210706
  Receipt Date: 20210709
  Transmission Date: 20211014
  Serious: Yes (Other)
  Sender: FDA-Public Use
  Company Number: JP-BRACCO-2021JP02870

PATIENT
  Age: 49 Year
  Sex: Female

DRUGS (1)
  1. IOPAMIRON [Suspect]
     Active Substance: IOPAMIDOL
     Dosage: 200 ML, SINGLE. DAILY DOSE 200 ML

REACTIONS (1)
  - Contrast encephalopathy [Recovering/Resolving]
